FAERS Safety Report 15249563 (Version 1)
Quarter: 2018Q3

REPORT INFORMATION
  Report Type: Spontaneous
  Country: BR (occurrence: BR)
  Receive Date: 20180807
  Receipt Date: 20180807
  Transmission Date: 20181010
  Serious: Yes (Other)
  Sender: FDA-Public Use
  Company Number: BR-PFIZER INC-2018315562

PATIENT
  Sex: Female

DRUGS (2)
  1. AMIODARONE HCL [Suspect]
     Active Substance: AMIODARONE HYDROCHLORIDE
     Dosage: UNK
     Route: 065
  2. PURAN [Suspect]
     Active Substance: LEVOTHYROXINE SODIUM
     Indication: THYROXINE DECREASED
     Dosage: UNK
     Route: 065

REACTIONS (5)
  - Malaise [Unknown]
  - Thrombosis [Not Recovered/Not Resolved]
  - Cardiac disorder [Unknown]
  - Nodule [Not Recovered/Not Resolved]
  - Apparent death [Unknown]
